APPROVED DRUG PRODUCT: DOXORUBICIN HYDROCHLORIDE
Active Ingredient: DOXORUBICIN HYDROCHLORIDE
Strength: 200MG/100ML
Dosage Form/Route: INJECTABLE;INJECTION
Application: N050629 | Product #002 | TE Code: AP
Applicant: PFIZER INC
Approved: May 3, 1988 | RLD: Yes | RS: Yes | Type: RX